FAERS Safety Report 7992868-7 (Version None)
Quarter: 2011Q4

REPORT INFORMATION
  Report Type: 
  Country: None (occurrence: None)
  Receive Date: 20111219
  Receipt Date: 20111024
  Transmission Date: 20120403
  Serious: No
  Sender: FDA-Public Use
  Company Number: US-ASTRAZENECA-2011SE64233

PATIENT
  Age: 71 Year
  Sex: Male

DRUGS (3)
  1. DIOVAN HCT [Concomitant]
     Dosage: 320/25 MG
  2. JANUMET [Concomitant]
     Dosage: 50-1000
  3. CRESTOR [Suspect]
     Route: 048

REACTIONS (3)
  - BLOOD CHOLESTEROL INCREASED [None]
  - DIABETES MELLITUS [None]
  - HYPERTENSION [None]
